FAERS Safety Report 15501089 (Version 7)
Quarter: 2021Q3

REPORT INFORMATION
  Report Type: Report from Study
  Country: DE (occurrence: DE)
  Receive Date: 20181015
  Receipt Date: 20210823
  Transmission Date: 20211014
  Serious: Yes (Hospitalization, Other)
  Sender: FDA-Public Use
  Company Number: DE-SHIRE-DE201835447

PATIENT
  Age: 32 Year
  Sex: Female
  Weight: 65 kg

DRUGS (15)
  1. BRONCHIPRET [Concomitant]
     Active Substance: HERBALS
     Indication: NASOPHARYNGITIS
  2. IMERON [Concomitant]
     Active Substance: IOMEPROL
     Indication: COMPUTERISED TOMOGRAM THORAX
  3. TEDUGLUTIDE [Suspect]
     Active Substance: TEDUGLUTIDE
     Indication: SHORT-BOWEL SYNDROME
     Dosage: 3.2 MILLIGRAM
     Route: 065
     Dates: start: 20160225
  4. GADOVIST [Concomitant]
     Active Substance: GADOBUTROL
     Indication: MAGNETIC RESONANCE IMAGING
  5. SINUPRET [Concomitant]
     Active Substance: DIETARY SUPPLEMENT\HERBALS
     Indication: NASOPHARYNGITIS
  6. TEDUGLUTIDE [Suspect]
     Active Substance: TEDUGLUTIDE
     Indication: SHORT-BOWEL SYNDROME
     Dosage: 3.2 MILLIGRAM
     Route: 065
     Dates: start: 20160225
  7. METRONIDAZOLE. [Concomitant]
     Active Substance: METRONIDAZOLE
     Indication: PROPHYLAXIS
     Dosage: 500 MILLIGRAM, 1 DOSE
     Route: 042
     Dates: start: 20180516, end: 20180516
  8. TEDUGLUTIDE [Suspect]
     Active Substance: TEDUGLUTIDE
     Indication: SHORT-BOWEL SYNDROME
     Dosage: 3.2 MILLIGRAM
     Route: 065
     Dates: start: 20160225
  9. BUSCOPAN [Concomitant]
     Active Substance: BUTYLSCOPOLAMINE BROMIDE
     Indication: MAGNETIC RESONANCE IMAGING
  10. CEFOTAXIME [Concomitant]
     Active Substance: CEFOTAXIME SODIUM
     Indication: PROPHYLAXIS
     Dosage: 2 GRAM, 1 DOSE
     Route: 042
     Dates: start: 20180516, end: 20180516
  11. XARELTO [Concomitant]
     Active Substance: RIVAROXABAN
     Indication: PRODUCT USED FOR UNKNOWN INDICATION
  12. NOVALGIN [Concomitant]
     Indication: PROCEDURAL PAIN
     Dosage: 40 GTT DROPS, QID
     Route: 048
     Dates: start: 20180516, end: 201806
  13. ELIQUIS [Concomitant]
     Active Substance: APIXABAN
     Indication: ANTICOAGULANT THERAPY
  14. PANTOPRAZOLE SODIUM. [Concomitant]
     Active Substance: PANTOPRAZOLE SODIUM
     Indication: PROPHYLAXIS
     Dosage: 40 MILLIGRAM, QD
     Route: 048
     Dates: start: 20180516, end: 2018
  15. TEDUGLUTIDE [Suspect]
     Active Substance: TEDUGLUTIDE
     Indication: SHORT-BOWEL SYNDROME
     Dosage: 3.2 MILLIGRAM
     Route: 065
     Dates: start: 20160225

REACTIONS (8)
  - Intestinal stenosis [Recovered/Resolved]
  - Post procedural inflammation [Recovered/Resolved]
  - Impaired healing [Recovered/Resolved]
  - Retroperitoneal lymphadenopathy [Not Recovered/Not Resolved]
  - Lipase increased [Recovered/Resolved]
  - Colitis ulcerative [Recovered/Resolved]
  - Spleen disorder [Not Recovered/Not Resolved]
  - Nasopharyngitis [Recovered/Resolved]

NARRATIVE: CASE EVENT DATE: 20170808
